FAERS Safety Report 11063278 (Version 1)
Quarter: 2015Q2

REPORT INFORMATION
  Report Type: Spontaneous
  Country: SE (occurrence: SE)
  Receive Date: 20150424
  Receipt Date: 20150424
  Transmission Date: 20150821
  Serious: Yes (Disabling)
  Sender: FDA-Public Use
  Company Number: SE-BAYER-2014-171364

PATIENT
  Age: 69 Year
  Sex: Male

DRUGS (2)
  1. SIMVASTATIN ARROW [Suspect]
     Active Substance: SIMVASTATIN
     Dosage: 20 MG, UNK
     Route: 048
  2. CIPROFLOXACIN. [Suspect]
     Active Substance: CIPROFLOXACIN
     Dosage: UNK

REACTIONS (9)
  - Pain [Unknown]
  - Muscle spasms [Unknown]
  - Myalgia [Unknown]
  - Haematuria [Unknown]
  - Hypoaesthesia [Unknown]
  - Abnormal dreams [Unknown]
  - Asthenia [Unknown]
  - Blood creatine phosphokinase increased [Unknown]
  - Myoglobin blood increased [Unknown]
